FAERS Safety Report 7591571-5 (Version None)
Quarter: 2011Q3

REPORT INFORMATION
  Report Type: 
  Country: None (occurrence: None)
  Receive Date: 20110706
  Receipt Date: 20090216
  Transmission Date: 20111222
  Serious: Yes (Death, Other)
  Sender: FDA-Public Use
  Company Number: US-BAYER-200913081NA

PATIENT
  Age: 71 Year
  Sex: Female
  Weight: 97 kg

DRUGS (36)
  1. ADVIL LIQUI-GELS [Concomitant]
     Dosage: UNK UNK, PRN
     Route: 048
  2. NOREPINEPHRINE BITARTRATE [Concomitant]
     Route: 042
  3. IMDUR [Concomitant]
     Dosage: 10 MG, BID
     Route: 048
  4. SODIUM POLYSTYRENE SULFONATE [Concomitant]
     Dosage: 30 MG, TID
     Route: 048
  5. HEPARIN [Concomitant]
     Dosage: 37000 U, UNK
     Route: 042
     Dates: start: 20010823
  6. PHENYLEPHRINE HCL [Concomitant]
     Dosage: UNK
     Route: 042
     Dates: start: 20010823
  7. LOPRESSOR [Concomitant]
     Dosage: 25 MG, BID
     Route: 048
  8. FUROSEMIDE [Concomitant]
     Dosage: 40 MG, QD
     Route: 048
  9. DOPAMINE HCL [Concomitant]
     Dosage: 20 MG/KG/MIN DRIP
     Route: 042
     Dates: end: 20010821
  10. GLUCOPHAGE [Concomitant]
     Dosage: 500 MG, QD
     Route: 048
  11. POTASSIUM [Concomitant]
     Dosage: 20 MEQ, QD
     Route: 048
     Dates: end: 20010818
  12. NITROGLYCERIN [Concomitant]
     Dosage: 0.4 MG, PRN PER PROTOCOL
     Route: 060
     Dates: start: 20010814
  13. CEFUROXIME [Concomitant]
     Dosage: 1.5 G, Q6HR PRE-SURGERY
     Route: 042
     Dates: start: 20010823
  14. ISORDIL [Concomitant]
     Route: 048
  15. FUROSEMIDE [Concomitant]
     Dosage: UNK
     Route: 042
     Dates: start: 20010823
  16. CELECOXIB [Concomitant]
  17. NAPROXEN [Concomitant]
     Dosage: UNK UNK, PRN
     Route: 048
  18. DOPAMINE HCL [Concomitant]
     Dosage: UNK
     Route: 042
     Dates: start: 20010823, end: 20010823
  19. HEPARIN [Concomitant]
     Dosage: GTTS/HOUR DRIP
     Route: 042
     Dates: start: 20010818
  20. KAYEXALATE [Concomitant]
     Route: 048
  21. VANCOMYCIN [Concomitant]
     Dosage: 2 G/ONCE, UNK
     Route: 042
  22. TRASYLOL [Suspect]
     Dosage: 20 CC (LOADING DOSE)
     Route: 042
     Dates: start: 20010823, end: 20010823
  23. NORVASC [Concomitant]
     Dosage: 5 MG, QD
     Route: 048
  24. LIPITOR [Concomitant]
     Dosage: 10 MG, QD AT BEDTIME
     Route: 048
  25. LIDOCAINE [Concomitant]
     Dosage: UNK
     Route: 042
     Dates: start: 20010823
  26. HYZAAR [Concomitant]
     Indication: HYPERTENSION
     Dosage: 100/25 MG, QD
     Route: 048
     Dates: end: 20010819
  27. NITROGLYCERIN [Concomitant]
     Dosage: 1/2 INCH, Q6HR
     Route: 062
     Dates: start: 20010809
  28. BACTRIM DS [Concomitant]
     Indication: URINARY TRACT INFECTION
     Dosage: ONE TABLET, BID
     Route: 048
     Dates: start: 20010817, end: 20010820
  29. GLUCOTROL XL [Concomitant]
     Dosage: 10 MG, QD
     Route: 048
     Dates: start: 20010809
  30. MANNITOL [Concomitant]
     Dosage: 500 CC, UNK
     Route: 042
     Dates: start: 20010322
  31. TRASYLOL [Suspect]
     Indication: CORONARY ARTERY BYPASS
     Dosage: 0.5 CC (INITIAL DOSE)
     Route: 042
     Dates: start: 20010823, end: 20010823
  32. ASPIRIN [Concomitant]
     Dosage: 81 MG, QD
     Route: 048
     Dates: start: 20010809
  33. INDOCIN [Concomitant]
  34. GLIPIZIDE [Concomitant]
     Dosage: 10 MG, QD
     Route: 048
  35. LEVAQUIN [Concomitant]
     Indication: BRONCHITIS
     Dosage: 500 MG, QD
     Route: 048
     Dates: start: 20010604
  36. PROTAMINE SULFATE [Concomitant]
     Dosage: 300 MG, UNK
     Route: 042
     Dates: start: 20010823

REACTIONS (12)
  - CEREBROVASCULAR ACCIDENT [None]
  - INJURY [None]
  - ANXIETY [None]
  - RENAL FAILURE [None]
  - UNEVALUABLE EVENT [None]
  - DEATH [None]
  - ANHEDONIA [None]
  - PAIN [None]
  - MYOCARDIAL INFARCTION [None]
  - RENAL INJURY [None]
  - FEAR [None]
  - DEPRESSION [None]
